FAERS Safety Report 9248575 (Version 3)
Quarter: 2013Q2

REPORT INFORMATION
  Report Type: Spontaneous
  Country: JP (occurrence: JP)
  Receive Date: 20130423
  Receipt Date: 20130516
  Transmission Date: 20140414
  Serious: Yes (Hospitalization, Other)
  Sender: FDA-Public Use
  Company Number: PHHY2013JP038570

PATIENT
  Age: 69 Year
  Sex: Female

DRUGS (6)
  1. NEORAL [Suspect]
     Indication: STILL^S DISEASE ADULT ONSET
     Dosage: 125 MG, PER DAY
     Route: 048
     Dates: start: 201209, end: 201209
  2. BAKTAR [Suspect]
     Indication: STILL^S DISEASE ADULT ONSET
     Dosage: 1 DF, DAILY
     Route: 048
     Dates: start: 201209, end: 201209
  3. TAKEPRON [Suspect]
     Indication: STILL^S DISEASE ADULT ONSET
     Dosage: 15 MG, DAILY
     Route: 048
     Dates: start: 201209, end: 201209
  4. PREDNISOLONE [Concomitant]
     Indication: STILL^S DISEASE ADULT ONSET
     Dosage: 40 MG, UNK
     Route: 048
     Dates: start: 201208, end: 201209
  5. ALFAROL [Concomitant]
     Dosage: 1 UG, UNK
     Route: 048
     Dates: start: 201209, end: 201209
  6. CORTICOSTEROID NOS [Concomitant]
     Indication: STILL^S DISEASE ADULT ONSET

REACTIONS (1)
  - Agranulocytosis [Recovered/Resolved]
